FAERS Safety Report 12247339 (Version 1)
Quarter: 2016Q2

REPORT INFORMATION
  Report Type: Spontaneous
  Country: US (occurrence: US)
  Receive Date: 20160407
  Receipt Date: 20160407
  Transmission Date: 20160815
  Serious: Yes (Hospitalization, Other)
  Sender: FDA-Public Use
  Company Number: US-PFIZER INC-2016189021

PATIENT
  Age: 44 Year
  Sex: Female
  Weight: 68.27 kg

DRUGS (3)
  1. ZITHROMAX [Suspect]
     Active Substance: AZITHROMYCIN DIHYDRATE
     Dosage: UNK
     Dates: start: 20151201, end: 20151206
  2. ESTROGENS CONJUGATED [Suspect]
     Active Substance: ESTROGENS, CONJUGATED
     Indication: PRODUCT USED FOR UNKNOWN INDICATION
     Dosage: UNK
     Dates: start: 2012, end: 201512
  3. ENTYVIO [Suspect]
     Active Substance: VEDOLIZUMAB
     Indication: COLITIS ULCERATIVE
     Dosage: 300 MG, UNK, Q8WEEKS
     Route: 042
     Dates: start: 201507, end: 20151202

REACTIONS (15)
  - Cholestasis [Unknown]
  - Jaundice [Unknown]
  - Pyrexia [Unknown]
  - Hypoglycaemia [Recovering/Resolving]
  - Asthenia [Unknown]
  - Dizziness [Unknown]
  - Diarrhoea [Unknown]
  - Abdominal pain lower [Unknown]
  - Chromaturia [Unknown]
  - Blood bilirubin increased [Unknown]
  - Blood glucose fluctuation [Unknown]
  - Blood urine present [Unknown]
  - Insomnia [Unknown]
  - Pruritus generalised [Unknown]
  - Faeces discoloured [Unknown]

NARRATIVE: CASE EVENT DATE: 201512
